FAERS Safety Report 4523466-5 (Version None)
Quarter: 2004Q4

REPORT INFORMATION
  Report Type: 
  Country: None (occurrence: None)
  Receive Date: 20041210
  Receipt Date: 20041005
  Transmission Date: 20050328
  Serious: Yes (Other)
  Sender: FDA-Public Use
  Company Number: US-MERCK-0410USA00810

PATIENT
  Age: 63 Year
  Sex: Female
  Weight: 89 kg

DRUGS (49)
  1. VIOXX [Suspect]
     Indication: ARTHRITIS
     Route: 048
     Dates: start: 20000501, end: 20040901
  2. AMITRIPTYLINE HYDROCHLORIDE [Concomitant]
     Indication: BACK INJURY
     Route: 048
     Dates: start: 19980513
  3. AMITRIPTYLINE HYDROCHLORIDE [Concomitant]
     Indication: MUSCLE SPASMS
     Route: 048
     Dates: start: 19980513
  4. LORTAB [Concomitant]
     Indication: BACK PAIN
     Route: 048
     Dates: start: 19980209
  5. VOLMAX [Concomitant]
     Indication: CHRONIC OBSTRUCTIVE AIRWAYS DISEASE
     Route: 048
     Dates: start: 19980929
  6. PROVENTIL [Concomitant]
     Indication: CHRONIC OBSTRUCTIVE AIRWAYS DISEASE
     Route: 055
     Dates: start: 19980929
  7. ZOVIRAX [Concomitant]
     Indication: HERPES ZOSTER
     Route: 048
     Dates: start: 19980118
  8. WELLBUTRIN SR [Concomitant]
     Route: 048
     Dates: start: 19990317
  9. DERMADEX [Concomitant]
     Route: 048
  10. ZAROXOLYN [Concomitant]
     Indication: OEDEMA PERIPHERAL
     Route: 048
     Dates: start: 19990608
  11. K-DUR [Concomitant]
     Indication: BLOOD POTASSIUM DECREASED
     Route: 048
     Dates: start: 19990614
  12. ALDACTONE [Concomitant]
     Indication: HYPERTENSION
     Route: 048
     Dates: start: 19990630
  13. CEFZIL [Concomitant]
     Indication: BRONCHITIS
     Route: 048
     Dates: start: 19991013
  14. TUSSIONEX [Concomitant]
     Indication: BRONCHITIS
     Route: 048
     Dates: start: 20000209
  15. PLAVIX [Concomitant]
     Route: 048
  16. DIPYRIDAMOLE [Concomitant]
     Route: 065
  17. AUSTYN [Concomitant]
     Indication: HYPERSENSITIVITY
     Route: 055
     Dates: start: 20000418
  18. NASALCROM [Concomitant]
     Indication: HYPERSENSITIVITY
     Route: 055
     Dates: start: 20000418
  19. CLARITIN [Concomitant]
     Indication: BRONCHITIS
     Route: 048
  20. CLARITIN [Concomitant]
     Indication: PNEUMONIA
     Route: 048
  21. TRICOR [Concomitant]
     Route: 048
  22. ZOCOR [Concomitant]
     Indication: HYPERLIPIDAEMIA
     Route: 048
  23. IMDUR [Concomitant]
     Route: 048
  24. FOLIC ACID [Concomitant]
     Route: 048
  25. TOPROL-XL [Concomitant]
     Indication: HYPERTENSION
     Route: 048
  26. TRENTAL [Concomitant]
     Route: 048
  27. PROCARDIA XL [Concomitant]
     Indication: HYPERTENSION
     Route: 048
  28. PRILOSEC [Concomitant]
     Indication: GASTROOESOPHAGEAL REFLUX DISEASE
     Route: 048
  29. ASPIRIN [Concomitant]
     Route: 065
  30. AVELOX [Concomitant]
     Route: 048
  31. ERYTHROMYCIN [Concomitant]
     Indication: BRONCHITIS ACUTE
     Route: 048
     Dates: start: 20010925
  32. ERYTHROMYCIN [Concomitant]
     Indication: PNEUMONIA
     Route: 048
     Dates: start: 20010925
  33. HUMIBID DM [Concomitant]
     Indication: PNEUMONIA
     Route: 048
     Dates: start: 20010925
  34. LEVAQUIN [Concomitant]
     Indication: BRONCHITIS
     Route: 048
     Dates: start: 20020308
  35. LEVAQUIN [Concomitant]
     Indication: PNEUMONIA
     Route: 048
     Dates: start: 20020308
  36. FLONASE [Concomitant]
     Indication: RHINITIS ALLERGIC
     Route: 055
     Dates: start: 20020419
  37. DIFLUCAN [Concomitant]
     Route: 048
     Dates: start: 20021115
  38. SKELAXIN [Concomitant]
     Indication: MUSCLE STRAIN
     Route: 048
     Dates: start: 20030110
  39. GUAIFENESIN [Concomitant]
     Route: 048
  40. NEXIUM [Concomitant]
     Indication: GASTROOESOPHAGEAL REFLUX DISEASE
     Route: 048
     Dates: start: 20030325
  41. ZANTAC [Concomitant]
     Indication: GASTROOESOPHAGEAL REFLUX DISEASE
     Route: 048
  42. PROTONIX [Concomitant]
     Route: 065
  43. PROZAC [Concomitant]
     Route: 065
  44. ACIPHEX [Concomitant]
     Indication: GASTROOESOPHAGEAL REFLUX DISEASE
     Route: 048
     Dates: start: 20030410
  45. PREVACID [Concomitant]
     Indication: GASTROOESOPHAGEAL REFLUX DISEASE
     Route: 047
     Dates: start: 20030410
  46. CELEBREX [Concomitant]
     Indication: PAIN
     Route: 048
     Dates: start: 20040406
  47. COLCHICINE [Concomitant]
     Indication: GOUT
     Route: 048
     Dates: start: 20040421
  48. PRANDIN [Concomitant]
     Indication: DIABETES MELLITUS
     Route: 061
     Dates: start: 20040908
  49. ZETIA [Concomitant]
     Route: 048

REACTIONS (2)
  - CARDIAC DISORDER [None]
  - GASTROOESOPHAGEAL REFLUX DISEASE [None]
